FAERS Safety Report 17701498 (Version 3)
Quarter: 2021Q2

REPORT INFORMATION
  Report Type: Spontaneous
  Country: US (occurrence: US)
  Receive Date: 20200424
  Receipt Date: 20210611
  Transmission Date: 20210716
  Serious: Yes (Other)
  Sender: FDA-Public Use
  Company Number: US-ASTRAZENECA-2020SE54082

PATIENT
  Age: 69 Year
  Sex: Female
  Weight: 92.5 kg

DRUGS (49)
  1. PRILOSEC [Suspect]
     Active Substance: OMEPRAZOLE MAGNESIUM
     Indication: GASTROOESOPHAGEAL REFLUX DISEASE
     Route: 048
     Dates: start: 200604, end: 201512
  2. TRAMADOL. [Concomitant]
     Active Substance: TRAMADOL
     Dates: start: 2015
  3. IBUPROFEN. [Concomitant]
     Active Substance: IBUPROFEN
     Indication: PAIN
     Dates: start: 2013
  4. FLAGYL [Concomitant]
     Active Substance: METRONIDAZOLE\METRONIDAZOLE HYDROCHLORIDE
  5. LEVOTHYROXINE. [Concomitant]
     Active Substance: LEVOTHYROXINE
  6. AZITHROMYCIN ANHYDROUS. [Concomitant]
     Active Substance: AZITHROMYCIN ANHYDROUS
     Dates: start: 2012
  7. ZANTAC [Concomitant]
     Active Substance: RANITIDINE HYDROCHLORIDE
     Dosage: 150
     Dates: start: 2010
  8. KETOROLAC [Concomitant]
     Active Substance: KETOROLAC TROMETHAMINE
  9. METFORMIN [Concomitant]
     Active Substance: METFORMIN HYDROCHLORIDE
  10. NATEGLINIDE. [Concomitant]
     Active Substance: NATEGLINIDE
  11. HYDROCHLOROTHIAZIDE. [Concomitant]
     Active Substance: HYDROCHLOROTHIAZIDE
  12. NEXIUM 24HR [Suspect]
     Active Substance: ESOMEPRAZOLE MAGNESIUM
     Indication: GASTROOESOPHAGEAL REFLUX DISEASE
     Route: 048
     Dates: start: 2014, end: 2015
  13. NEURONTIN [Concomitant]
     Active Substance: GABAPENTIN
  14. MIACALCIN [Concomitant]
     Active Substance: CALCITONIN SALMON
  15. AZITHROMYCIN ANHYDROUS. [Concomitant]
     Active Substance: AZITHROMYCIN ANHYDROUS
     Dates: start: 2015
  16. AZITHROMYCIN ANHYDROUS. [Concomitant]
     Active Substance: AZITHROMYCIN ANHYDROUS
     Dates: start: 2014, end: 2015
  17. BACLOFEN. [Concomitant]
     Active Substance: BACLOFEN
  18. PRILOSEC [Suspect]
     Active Substance: OMEPRAZOLE MAGNESIUM
     Indication: GASTROOESOPHAGEAL REFLUX DISEASE
     Dosage: GENERIC
     Route: 065
     Dates: start: 2013, end: 2015
  19. VICOPROFEN [Concomitant]
     Active Substance: HYDROCODONE BITARTRATE\IBUPROFEN
  20. CIPROFLOXACIN. [Concomitant]
     Active Substance: CIPROFLOXACIN
     Dates: start: 2015
  21. AMITRIPTYLINE [Concomitant]
     Active Substance: AMITRIPTYLINE
     Dates: start: 2012
  22. TRAMADOL. [Concomitant]
     Active Substance: TRAMADOL
     Dates: start: 2013
  23. LIPITOR [Concomitant]
     Active Substance: ATORVASTATIN CALCIUM
     Dates: start: 2012
  24. LOVASTATIN. [Concomitant]
     Active Substance: LOVASTATIN
     Dates: start: 2012, end: 2014
  25. VITAMIN A [Concomitant]
     Active Substance: VITAMIN A
     Indication: VITAMIN A DEFICIENCY
     Dates: start: 2015
  26. LEUCINE/VITAMIN B12 NOS/NICOTINAMIDE/VITAMIN E NOS/VALINE/BIOTIN/PHENYLALANINE/RETINOL/LYSINE/5?HYDR [Concomitant]
     Indication: HYPOVITAMINOSIS
     Dates: start: 2015
  27. MILK OF MAGNESIA [Concomitant]
     Active Substance: MAGNESIUM HYDROXIDE
     Dates: start: 1980, end: 2005
  28. PROMETHAZINE [Concomitant]
     Active Substance: PROMETHAZINE HYDROCHLORIDE
  29. PRILOSEC [Suspect]
     Active Substance: OMEPRAZOLE MAGNESIUM
     Indication: GASTROOESOPHAGEAL REFLUX DISEASE
     Dosage: GENERIC
     Route: 048
     Dates: start: 20141001
  30. PREVACID [Suspect]
     Active Substance: LANSOPRAZOLE
     Indication: GASTROOESOPHAGEAL REFLUX DISEASE
     Route: 065
     Dates: start: 2006, end: 2010
  31. FLONASE [Concomitant]
     Active Substance: FLUTICASONE PROPIONATE
  32. ASPIRIN. [Concomitant]
     Active Substance: ASPIRIN
     Indication: CARDIAC DISORDER
     Dates: start: 2021
  33. DICYCLOMINE [Concomitant]
     Active Substance: DICYCLOMINE HYDROCHLORIDE
  34. PRILOSEC [Suspect]
     Active Substance: OMEPRAZOLE MAGNESIUM
     Indication: GASTROOESOPHAGEAL REFLUX DISEASE
     Route: 048
     Dates: start: 2010, end: 2015
  35. NEXIUM [Suspect]
     Active Substance: ESOMEPRAZOLE MAGNESIUM
     Indication: GASTROOESOPHAGEAL REFLUX DISEASE
     Route: 048
     Dates: start: 2001, end: 2004
  36. ZOLPIDEM [Concomitant]
     Active Substance: ZOLPIDEM TARTRATE
  37. NEXIUM 24HR [Suspect]
     Active Substance: ESOMEPRAZOLE MAGNESIUM
     Indication: GASTROOESOPHAGEAL REFLUX DISEASE
     Route: 048
     Dates: start: 2010, end: 2015
  38. PREVACID [Suspect]
     Active Substance: LANSOPRAZOLE
     Indication: GASTROOESOPHAGEAL REFLUX DISEASE
     Route: 065
     Dates: start: 200604, end: 201512
  39. LISINOPRIL. [Concomitant]
     Active Substance: LISINOPRIL
     Dates: start: 2012, end: 2015
  40. HYDRALAZINE [Concomitant]
     Active Substance: HYDRALAZINE HYDROCHLORIDE
  41. NEXIUM 24HR [Suspect]
     Active Substance: ESOMEPRAZOLE MAGNESIUM
     Indication: GASTROOESOPHAGEAL REFLUX DISEASE
     Dosage: GENERIC
     Route: 048
     Dates: start: 2013, end: 2015
  42. PREMARIN [Concomitant]
     Active Substance: ESTROGENS, CONJUGATED
  43. TOPIRAMATE. [Concomitant]
     Active Substance: TOPIRAMATE
  44. CIPROFLOXACIN. [Concomitant]
     Active Substance: CIPROFLOXACIN
     Dates: start: 2012
  45. AMITRIPTYLINE [Concomitant]
     Active Substance: AMITRIPTYLINE
     Dates: start: 2015
  46. AMITRIPTYLINE [Concomitant]
     Active Substance: AMITRIPTYLINE
     Dates: start: 2014, end: 2015
  47. CITALOPRAM [Concomitant]
     Active Substance: CITALOPRAM HYDROBROMIDE
  48. METRONIDAZOLE. [Concomitant]
     Active Substance: METRONIDAZOLE
  49. LANTUS [Concomitant]
     Active Substance: INSULIN GLARGINE

REACTIONS (3)
  - Chronic kidney disease [Not Recovered/Not Resolved]
  - Nephrogenic anaemia [Unknown]
  - Renal failure [Unknown]

NARRATIVE: CASE EVENT DATE: 2013
